FAERS Safety Report 4596066-9 (Version None)
Quarter: 2005Q1

REPORT INFORMATION
  Report Type: 
  Country: None (occurrence: None)
  Receive Date: 20050228
  Receipt Date: 20050228
  Transmission Date: 20050727
  Serious: Yes (Death)
  Sender: FDA-Public Use
  Company Number: None

PATIENT
  Age: 45 Year
  Sex: Male
  Weight: 73.0291 kg

DRUGS (2)
  1. DEPAKOTE [Suspect]
     Indication: ABNORMAL BEHAVIOUR
     Dosage: 500 MG 1 TAB TID
     Dates: start: 19920101
  2. DEPAKOTE [Suspect]
     Indication: CONVULSION
     Dosage: 500 MG 1 TAB TID
     Dates: start: 19920101

REACTIONS (3)
  - CONSTIPATION [None]
  - PANCREATITIS HAEMORRHAGIC [None]
  - VOMITING [None]
